FAERS Safety Report 5877539-5 (Version None)
Quarter: 2008Q3

REPORT INFORMATION
  Report Type: 
  Country: None (occurrence: None)
  Receive Date: 20080909
  Receipt Date: 20080826
  Transmission Date: 20090109
  Serious: Yes (Hospitalization, Disabling, Other)
  Sender: FDA-Public Use
  Company Number: 2007-02337

PATIENT
  Age: 58 Year
  Sex: Male
  Weight: 74 kg

DRUGS (17)
  1. VELCADE [Suspect]
     Indication: MULTIPLE MYELOMA
     Dosage: 2.4 MG, INTRAVENOUS
     Route: 042
     Dates: start: 20070516, end: 20070616
  2. DEXAMETHASONE TAB [Suspect]
     Indication: MULTIPLE MYELOMA
     Dosage: 20.00 MG, INTRAVENOUS
     Route: 042
     Dates: start: 20070516, end: 20070617
  3. MUCOSTA (REBAMIPIDE) [Concomitant]
  4. LOXONIN (LOXOPROFEN SODIUM) [Concomitant]
  5. MECOBALAMIN (MECOBALAMIN) TABLET [Concomitant]
  6. JUVELA (TOCOPHEROL) TABLET [Concomitant]
  7. ITRIZOLE (ITRACONAZOLE) INJECTION [Concomitant]
  8. VALTREX [Concomitant]
  9. LAC B (LACTOBACILLUS BIFIDUS, LYOPHILIZED) [Concomitant]
  10. FOSMICIN (FOSFOMYCIN CALCIUM) [Concomitant]
  11. LOPERAMIDE HCL [Concomitant]
  12. SLOW-K [Concomitant]
  13. SULFAMETHOXAZOLE AND TRIMETHOPRIM [Concomitant]
  14. GAMIMUNE N 5% [Concomitant]
  15. FUTHAN (NAFAMOSTAT MESILATE) [Concomitant]
  16. ROPION (FLURBIPROFEN AXETIL) [Concomitant]
  17. FAMOTIDINE [Concomitant]

REACTIONS (14)
  - DYSPEPSIA [None]
  - ENTEROCOLITIS [None]
  - FLUID RETENTION [None]
  - HEPATIC FUNCTION ABNORMAL [None]
  - HERPES ZOSTER [None]
  - HYPOALBUMINAEMIA [None]
  - HYPOKALAEMIA [None]
  - ORTHOSTATIC HYPOTENSION [None]
  - PANCREATITIS ACUTE [None]
  - PNEUMONIA CYTOMEGALOVIRAL [None]
  - POLYNEUROPATHY [None]
  - THROMBOCYTOPENIA [None]
  - VARICELLA [None]
  - WHITE BLOOD CELL COUNT DECREASED [None]
